FAERS Safety Report 15468506 (Version 1)
Quarter: 2018Q4

REPORT INFORMATION
  Report Type: Spontaneous
  Country: US (occurrence: US)
  Receive Date: 20181003
  Receipt Date: 20181003
  Transmission Date: 20190204
  Serious: No
  Sender: FDA-Public Use
  Company Number: None

PATIENT
  Age: 60 Year
  Sex: Female

DRUGS (1)
  1. FORTEO [Suspect]
     Active Substance: TERIPARATIDE
     Indication: SENILE OSTEOPOROSIS
     Route: 058
     Dates: start: 201806

REACTIONS (5)
  - Feeling abnormal [None]
  - Therapy cessation [None]
  - Viral infection [None]
  - Insurance issue [None]
  - Injection site pain [None]

NARRATIVE: CASE EVENT DATE: 20180827
